FAERS Safety Report 19678403 (Version 1)
Quarter: 2021Q3

REPORT INFORMATION
  Report Type: Report from Study
  Country: IE (occurrence: IE)
  Receive Date: 20210810
  Receipt Date: 20210810
  Transmission Date: 20211014
  Serious: Yes (Other)
  Sender: FDA-Public Use
  Company Number: IE-ADVANZ PHARMA-202107005389

PATIENT

DRUGS (7)
  1. FUROSEMIDE. [Suspect]
     Active Substance: FUROSEMIDE
     Indication: PROPHYLAXIS AGAINST TRANSPLANT REJECTION
     Dosage: UNK
  2. RANITIDINE (GENERIC) [Suspect]
     Active Substance: RANITIDINE
     Indication: PROPHYLAXIS AGAINST TRANSPLANT REJECTION
     Dosage: UNK
  3. TACROLIMUS (GENERIC) [Suspect]
     Active Substance: TACROLIMUS
     Indication: PROPHYLAXIS AGAINST TRANSPLANT REJECTION
     Dosage: UNK
  4. PREDNISOLONE. [Suspect]
     Active Substance: PREDNISOLONE
     Indication: PROPHYLAXIS AGAINST TRANSPLANT REJECTION
     Dosage: UNK
  5. AMOXICILLIN/CLAVULANIC ACID (G) (G) [Suspect]
     Active Substance: AMOXICILLIN\CLAVULANIC ACID
     Indication: PROPHYLAXIS AGAINST TRANSPLANT REJECTION
     Dosage: UNK
  6. CO?TRIMOXAZOLE (GENERIC) [Suspect]
     Active Substance: SULFAMETHOXAZOLE\TRIMETHOPRIM
     Indication: ANTIFUNGAL PROPHYLAXIS
     Dosage: UNK
  7. MYCOPHENOLATE MOFETIL (G) [Suspect]
     Active Substance: MYCOPHENOLATE MOFETIL
     Indication: PROPHYLAXIS AGAINST TRANSPLANT REJECTION
     Dosage: UNK

REACTIONS (4)
  - Tubulointerstitial nephritis [Recovered/Resolved]
  - Lymphocytic infiltration [Recovered/Resolved]
  - Blood creatinine abnormal [Recovered/Resolved]
  - Transplant dysfunction [Recovered/Resolved]
